FAERS Safety Report 15735081 (Version 1)
Quarter: 2018Q4

REPORT INFORMATION
  Report Type: Report from Study
  Country: US (occurrence: US)
  Receive Date: 20181218
  Receipt Date: 20181218
  Transmission Date: 20190205
  Serious: Yes (Life-Threatening)
  Sender: FDA-Public Use
  Company Number: US-PFIZER INC-2018516708

PATIENT

DRUGS (3)
  1. FLUDARABINE PHOSPHATE. [Suspect]
     Active Substance: FLUDARABINE PHOSPHATE
     Indication: B-CELL LYMPHOMA
     Dosage: 30 MG/M2, CYCLIC (BODY-SURFACE AREA PER DAY, ON DAYS -5, -4, AND -3,))
     Route: 042
  2. AXICABTAGENE CILOLEUCEL [Suspect]
     Active Substance: AXICABTAGENE CILOLEUCEL
     Indication: B-CELL LYMPHOMA
     Dosage: UNK UNK, SINGLE (ON DAY 0 AT A TARGET DOSE OF 2 X 10^6 CAR T CELLS PER KG OF BODYWEIGHT )
     Route: 042
  3. CYCLOPHOSPHAMIDE. [Suspect]
     Active Substance: CYCLOPHOSPHAMIDE
     Indication: B-CELL LYMPHOMA
     Dosage: 500 MG/M2, CYCLIC (BODY-SURFACE AREA PER DAY, ON DAYS -5, -4, AND -3,)

REACTIONS (1)
  - Myelitis [Unknown]
